FAERS Safety Report 6750599-5 (Version None)
Quarter: 2010Q2

REPORT INFORMATION
  Report Type: 
  Country: None (occurrence: None)
  Receive Date: 20100528
  Receipt Date: 20100528
  Transmission Date: 20101027
  Serious: Yes (Other)
  Sender: FDA-Public Use
  Company Number: None

PATIENT
  Sex: Female
  Weight: 92.9874 kg

DRUGS (1)
  1. HYZAAR [Suspect]
     Indication: CONGESTIVE CARDIOMYOPATHY
     Dosage: 50-12.5MG 1/DAY ORAL
     Route: 048
     Dates: start: 20100506, end: 20100526

REACTIONS (2)
  - COUGH [None]
  - PRODUCT SUBSTITUTION ISSUE [None]
